FAERS Safety Report 4400702-7 (Version None)
Quarter: 2004Q3

REPORT INFORMATION
  Report Type: 
  Country: None (occurrence: None)
  Receive Date: 20040715
  Receipt Date: 20040715
  Transmission Date: 20050211
  Serious: Yes (Life-Threatening, Hospitalization)
  Sender: FDA-Public Use
  Company Number: None

PATIENT
  Sex: Female
  Weight: 53.5244 kg

DRUGS (9)
  1. TAXOTERE [Suspect]
     Indication: NEOPLASM
     Dosage: 120 MG /EVERY21 DAYS IV
     Route: 042
     Dates: start: 20040525, end: 20040706
  2. OSI -774 250 MG [Suspect]
     Indication: NEOPLASM
     Dosage: 250 MG QD FOR 15 DAYS PO
     Route: 048
     Dates: start: 20040524, end: 20040621
  3. MULTIVITAMIN [Concomitant]
  4. FOSAMAX [Concomitant]
  5. ATIVAN [Concomitant]
  6. COMPAZINE [Concomitant]
  7. DEXAMETHASONE [Concomitant]
  8. LORAZEPAM [Concomitant]
  9. CLEOCIN T-GEL [Concomitant]

REACTIONS (9)
  - CHEST DISCOMFORT [None]
  - COUGH [None]
  - DISEASE PROGRESSION [None]
  - DYSPNOEA [None]
  - DYSPNOEA EXERTIONAL [None]
  - HYPOXIA [None]
  - OXYGEN SATURATION DECREASED [None]
  - PLEURITIC PAIN [None]
  - PULMONARY FIBROSIS [None]
